FAERS Safety Report 8722437 (Version 2)
Quarter: 2012Q4

REPORT INFORMATION
  Report Type: 
  Country: FR (occurrence: FR)
  Receive Date: 20120814
  Receipt Date: 20121003
  Transmission Date: 20130627
  Serious: Yes (Other)
  Sender: FDA-Public Use
  Company Number: FR-PFIZER INC-2012191947

PATIENT
  Age: 22 Year
  Sex: Male
  Weight: 53 kg

DRUGS (14)
  1. ZITHROMAX [Suspect]
     Dosage: 2 DF, 1x/day
     Route: 048
     Dates: end: 20120726
  2. PRAVASTATINE [Suspect]
     Dosage: 40 mg, 1x/day
     Route: 048
     Dates: end: 20120726
  3. BACTRIM [Concomitant]
     Dosage: 400 mg, 1x/day
  4. CELLCEPT [Concomitant]
     Dosage: 1500 mg, 2x/day
  5. CREON [Concomitant]
  6. DOMPERIDONE [Concomitant]
  7. ROVALCYTE [Concomitant]
     Dosage: 900 mg, 1x/day
  8. TRANXENE [Concomitant]
     Dosage: 20 mg, 1x/day
  9. INEXIUM [Concomitant]
     Dosage: 20 mg, 2x/day
  10. ADVAGRAF [Concomitant]
     Dosage: 10 mg, 1x/day
  11. UVEDOSE [Concomitant]
  12. IMODIUM [Concomitant]
  13. CORTANCYL [Concomitant]
     Dosage: 25 mg, 1x/day
  14. TENORMINE [Concomitant]
     Dosage: 100 mg, 1x/day

REACTIONS (2)
  - Hepatocellular injury [Recovered/Resolved]
  - Cholestasis [Recovered/Resolved]
